FAERS Safety Report 11468125 (Version 1)
Quarter: 2015Q3

REPORT INFORMATION
  Report Type: Spontaneous
  Country: US (occurrence: US)
  Receive Date: 20150908
  Receipt Date: 20150908
  Transmission Date: 20151125
  Serious: Yes (Death, Other)
  Sender: FDA-Public Use
  Company Number: US-PFIZER INC-2015295036

PATIENT
  Sex: Male

DRUGS (3)
  1. REVATIO [Suspect]
     Active Substance: SILDENAFIL CITRATE
     Indication: PULMONARY HYPERTENSION
     Dosage: 80 MG, 4X/DAY
  2. ALBUTEROL. [Concomitant]
     Active Substance: ALBUTEROL
  3. OPSUMIT [Concomitant]
     Active Substance: MACITENTAN
     Indication: PULMONARY HYPERTENSION
     Dosage: 10 MG, 1X/DAY

REACTIONS (4)
  - Cardiac disorder [Fatal]
  - Incorrect dose administered [Unknown]
  - Abasia [Unknown]
  - Pulmonary fibrosis [Fatal]
